FAERS Safety Report 8065379-0 (Version None)
Quarter: 2012Q1

REPORT INFORMATION
  Report Type: 
  Country: None (occurrence: None)
  Receive Date: 20120117
  Receipt Date: 20120111
  Transmission Date: 20120608
  Serious: Yes (Other)
  Sender: FDA-Public Use
  Company Number: 2011SP050489

PATIENT
  Age: 79 Year
  Sex: Male

DRUGS (8)
  1. ENALAPRIL MALEATE [Concomitant]
  2. DIGOXIN [Concomitant]
  3. LULLAN (PEROSPIRONE HYDROCHLORIDE) [Suspect]
     Indication: DELIRIUM
     Dosage: 4 MG;QD;PO
     Route: 048
     Dates: start: 20110714, end: 20110808
  4. URSODIOL [Concomitant]
  5. LANSOPRAZOLE [Concomitant]
  6. SILODOSIN [Concomitant]
  7. AMLODIPINE BESYLATE [Concomitant]
  8. MIRTAZAPINE [Suspect]
     Indication: DEPRESSION
     Dosage: 15 MG;QD;PO
     Route: 048
     Dates: start: 20110804, end: 20110808

REACTIONS (2)
  - PARKINSONISM [None]
  - TREMOR [None]
